FAERS Safety Report 25668233 (Version 1)
Quarter: 2025Q3

REPORT INFORMATION
  Report Type: Spontaneous
  Country: EU (occurrence: EU)
  Receive Date: 20250812
  Receipt Date: 20250812
  Transmission Date: 20251020
  Serious: Yes (Hospitalization, Other)
  Sender: CSL BEHRING
  Company Number: None

PATIENT
  Age: 75 Year
  Sex: Female
  Weight: 54 kg

DRUGS (1)
  1. PRIVIGEN [Suspect]
     Active Substance: HUMAN IMMUNOGLOBULIN G
     Indication: Hypogammaglobulinaemia
     Route: 042
     Dates: start: 20250519, end: 20250519

REACTIONS (1)
  - Hypertensive crisis [Recovered/Resolved]

NARRATIVE: CASE EVENT DATE: 20250519
